FAERS Safety Report 4295299-9 (Version None)
Quarter: 2004Q1

REPORT INFORMATION
  Report Type: 
  Country: None (occurrence: None)
  Receive Date: 20040216
  Receipt Date: 20030522
  Transmission Date: 20041129
  Serious: No
  Sender: FDA-Public Use
  Company Number: US-GLAXOSMITHKLINE-A0409329A

PATIENT
  Age: 35 Year
  Sex: Female

DRUGS (4)
  1. LAMICTAL [Suspect]
     Indication: EPILEPSY
     Dosage: 25MG PER DAY
     Route: 048
     Dates: start: 20030508
  2. DEPAKOTE [Concomitant]
  3. DILANTIN [Concomitant]
  4. KEPPRA [Concomitant]

REACTIONS (2)
  - AGITATION [None]
  - MOOD ALTERED [None]
